FAERS Safety Report 4480499-5 (Version None)
Quarter: 2004Q4

REPORT INFORMATION
  Report Type: 
  Country: None (occurrence: None)
  Receive Date: 20041019
  Receipt Date: 20041007
  Transmission Date: 20050328
  Serious: Yes (Other)
  Sender: FDA-Public Use
  Company Number: 002884

PATIENT
  Age: 37 Year
  Sex: Female
  Weight: 52.2 kg

DRUGS (1)
  1. SEASONALE [Suspect]
     Indication: ENDOMETRIOSIS
     Dosage: 1.00 TABLET QD ORAL
     Route: 048
     Dates: start: 20041003, end: 20041007

REACTIONS (5)
  - CONDITION AGGRAVATED [None]
  - DYSPEPSIA [None]
  - NAUSEA [None]
  - SOMATOFORM DISORDER PREGNANCY [None]
  - SUPRAVENTRICULAR TACHYCARDIA [None]
